FAERS Safety Report 8129029-7 (Version None)
Quarter: 2012Q1

REPORT INFORMATION
  Report Type: 
  Country: None (occurrence: None)
  Receive Date: 20120210
  Receipt Date: 20110809
  Transmission Date: 20120608
  Serious: Yes (Other)
  Sender: FDA-Public Use
  Company Number: US-BRISTOL-MYERS SQUIBB COMPANY-15956394

PATIENT
  Age: 44 Year
  Sex: Female
  Weight: 98 kg

DRUGS (1)
  1. ORENCIA [Suspect]
     Dosage: 1INF:24MAY11 2INF:07JUN11 3INF:21JUN11; LOT:1B65477, EXP DATE:JAN2014
     Dates: start: 20110524

REACTIONS (2)
  - PRURITUS [None]
  - THROAT IRRITATION [None]
